FAERS Safety Report 7042390-X (Version None)
Quarter: 2010Q4

REPORT INFORMATION
  Report Type: 
  Country: None (occurrence: None)
  Receive Date: 20101013
  Receipt Date: 20100719
  Transmission Date: 20110411
  Serious: No
  Sender: FDA-Public Use
  Company Number: US-ASTRAZENECA-2010SE33723

PATIENT
  Age: 53 Year
  Sex: Female
  Weight: 68 kg

DRUGS (1)
  1. SYMBICORT [Suspect]
     Indication: BRONCHITIS CHRONIC
     Route: 055
     Dates: start: 20090101, end: 20100501

REACTIONS (6)
  - DIZZINESS [None]
  - DYSPNOEA [None]
  - FALL [None]
  - INSOMNIA [None]
  - VITAMIN B12 DECREASED [None]
  - WHITE BLOOD CELL COUNT DECREASED [None]
